FAERS Safety Report 18237709 (Version 2)
Quarter: 2020Q3

REPORT INFORMATION
  Report Type: Report from Study
  Country: US (occurrence: US)
  Receive Date: 20200907
  Receipt Date: 20200930
  Transmission Date: 20201103
  Serious: Yes (Death, Hospitalization, Other)
  Sender: FDA-Public Use
  Company Number: NVSC2020US240201

PATIENT
  Sex: Female
  Weight: 75.75 kg

DRUGS (9)
  1. METOPROLOL TARTRATE. [Concomitant]
     Active Substance: METOPROLOL TARTRATE
     Indication: PRODUCT USED FOR UNKNOWN INDICATION
     Dosage: 50 MG, QD
     Route: 065
  2. COSENTYX [Suspect]
     Active Substance: SECUKINUMAB
     Dosage: 300 MG, UNKNOWN
     Route: 065
     Dates: start: 20200218, end: 20200423
  3. ELIQUIS [Concomitant]
     Active Substance: APIXABAN
     Indication: ANTICOAGULANT THERAPY
     Dosage: 5 MG, QD
     Route: 065
  4. LISINOPRIL. [Concomitant]
     Active Substance: LISINOPRIL
     Indication: HYPERTENSION
     Dosage: 10 MG, QD
     Route: 065
  5. GABAPENTIN. [Concomitant]
     Active Substance: GABAPENTIN
     Indication: PRODUCT USED FOR UNKNOWN INDICATION
     Dosage: UNK UNK, UNKNOWN
     Route: 065
  6. ASPIRIN. [Concomitant]
     Active Substance: ASPIRIN
     Indication: PRODUCT USED FOR UNKNOWN INDICATION
     Dosage: 81 MG, QD
     Route: 065
  7. AMLODIPINE [Concomitant]
     Active Substance: AMLODIPINE BESYLATE
     Indication: PRODUCT USED FOR UNKNOWN INDICATION
     Dosage: UNK UNK, UNKNOWN
     Route: 065
  8. COSENTYX [Suspect]
     Active Substance: SECUKINUMAB
     Indication: PSORIASIS
     Dosage: 300 MG, UNKNOWN
     Route: 065
     Dates: start: 20190516, end: 20190915
  9. ATORVASTATIN [Concomitant]
     Active Substance: ATORVASTATIN
     Indication: HYPERLIPIDAEMIA
     Dosage: 20 MG, QD
     Route: 065

REACTIONS (26)
  - Haemorrhoids [Fatal]
  - Sepsis [Fatal]
  - Diarrhoea [Unknown]
  - Nausea [Unknown]
  - Vomiting [Unknown]
  - Decubitus ulcer [Unknown]
  - Anaemia [Unknown]
  - Cholelithiasis [Unknown]
  - Respiratory failure [Fatal]
  - Septic shock [Fatal]
  - Plasma cell myeloma [Fatal]
  - Gastritis [Fatal]
  - Transaminases increased [Unknown]
  - Clostridium difficile infection [Fatal]
  - Gastrointestinal haemorrhage [Fatal]
  - Renal tubular necrosis [Unknown]
  - Physical deconditioning [Unknown]
  - Acute respiratory failure [Fatal]
  - Lactic acidosis [Fatal]
  - Fatigue [Unknown]
  - Diverticulum [Fatal]
  - Folate deficiency [Unknown]
  - Hypercalcaemia [Unknown]
  - Disseminated intravascular coagulation [Fatal]
  - Acute kidney injury [Unknown]
  - Asthenia [Unknown]

NARRATIVE: CASE EVENT DATE: 202006
